FAERS Safety Report 15317052 (Version 1)
Quarter: 2018Q3

REPORT INFORMATION
  Report Type: Spontaneous
  Country: IN (occurrence: IN)
  Receive Date: 20180824
  Receipt Date: 20180824
  Transmission Date: 20181010
  Serious: Yes (Death, Hospitalization, Other)
  Sender: FDA-Public Use
  Company Number: IN-ARBOR PHARMACEUTICALS, LLC-IN-2018ARB000888

PATIENT
  Age: 67 Year
  Sex: Male

DRUGS (1)
  1. TRIPTODUR [Suspect]
     Active Substance: TRIPTORELIN
     Indication: PROSTATE CANCER
     Dosage: 11.25 MG, UNK
     Dates: start: 20160921

REACTIONS (8)
  - Constipation [Unknown]
  - Acute kidney injury [Unknown]
  - Dysuria [Unknown]
  - Drug ineffective [Unknown]
  - Electrolyte imbalance [Recovered/Resolved]
  - Death [Fatal]
  - Transurethral prostatectomy [Unknown]
  - Proctalgia [Unknown]

NARRATIVE: CASE EVENT DATE: 20180127
